FAERS Safety Report 8524095-9 (Version None)
Quarter: 2012Q3

REPORT INFORMATION
  Report Type: 
  Country: None (occurrence: None)
  Receive Date: 20120720
  Receipt Date: 20120712
  Transmission Date: 20120928
  Serious: Yes (Other)
  Sender: FDA-Public Use
  Company Number: NL-JNJFOC-20120704575

PATIENT
  Sex: Female

DRUGS (4)
  1. XARELTO [Suspect]
     Indication: THROMBOSIS PROPHYLAXIS
     Route: 048
     Dates: start: 20120704, end: 20120708
  2. TRAMADOL HYDROCHLORIDE [Concomitant]
  3. PAROXETINE [Concomitant]
  4. XARELTO [Suspect]
     Indication: KNEE ARTHROPLASTY
     Route: 048
     Dates: start: 20120704, end: 20120708

REACTIONS (1)
  - PULMONARY EMBOLISM [None]
